FAERS Safety Report 5129553-5 (Version None)
Quarter: 2006Q4

REPORT INFORMATION
  Report Type: 
  Country: None (occurrence: None)
  Receive Date: 20061012
  Receipt Date: 20060927
  Transmission Date: 20070319
  Serious: Yes (Hospitalization)
  Sender: FDA-Public Use
  Company Number: 2006S1009127

PATIENT
  Age: 55 Year
  Sex: Female
  Weight: 86.1834 kg

DRUGS (6)
  1. FENTANYL TRANSDERMAL SYSTEM [Suspect]
     Indication: INTERVERTEBRAL DISC DEGENERATION
     Dosage: 75 UG/HR; Q3D; TDER
     Route: 062
     Dates: start: 20050201
  2. FENTANYL TRANSDERMAL SYSTEM [Suspect]
     Indication: SPINAL COLUMN STENOSIS
     Dosage: 75 UG/HR; Q3D; TDER
     Route: 062
     Dates: start: 20050201
  3. GABAPENTIN [Concomitant]
  4. FLUOXETINE [Concomitant]
  5. ZOLPIDEM TARTRATE [Concomitant]
  6. AMLODIPINE [Concomitant]

REACTIONS (4)
  - DIARRHOEA [None]
  - PHARMACEUTICAL PRODUCT COMPLAINT [None]
  - VARICES OESOPHAGEAL [None]
  - WRONG TECHNIQUE IN DRUG USAGE PROCESS [None]
